FAERS Safety Report 18754765 (Version 2)
Quarter: 2021Q1

REPORT INFORMATION
  Report Type: Spontaneous
  Country: MX (occurrence: MX)
  Receive Date: 20210119
  Receipt Date: 20210201
  Transmission Date: 20210419
  Serious: Yes (Death, Hospitalization, Other)
  Sender: FDA-Public Use
  Company Number: MX-AMGEN-MEXSP2021004115

PATIENT

DRUGS (1)
  1. FILGRASTIM [Suspect]
     Active Substance: FILGRASTIM
     Indication: PROPHYLAXIS
     Dosage: UNK
     Route: 065

REACTIONS (11)
  - Neutropenic colitis [Unknown]
  - Pleural thickening [Unknown]
  - Febrile neutropenia [Unknown]
  - Leukaemia [Unknown]
  - Pneumonia bacterial [Unknown]
  - Pulmonary haemorrhage [Fatal]
  - Lymphoma [Unknown]
  - Neoplasm malignant [Unknown]
  - Leukaemia recurrent [Unknown]
  - SARS-CoV-2 test positive [Unknown]
  - Pneumonia [Unknown]

NARRATIVE: CASE EVENT DATE: 2020
